FAERS Safety Report 4695920-7 (Version None)
Quarter: 2005Q2

REPORT INFORMATION
  Report Type: 
  Country: None (occurrence: None)
  Receive Date: 20050621
  Receipt Date: 20041229
  Transmission Date: 20051028
  Serious: Yes (Hospitalization, Disabling)
  Sender: FDA-Public Use
  Company Number: US-MERCK-0412USA03281

PATIENT
  Age: 32 Year
  Sex: Female
  Weight: 95 kg

DRUGS (7)
  1. VIOXX [Suspect]
     Indication: ABDOMINAL PAIN UPPER
     Route: 048
     Dates: start: 20030901, end: 20040901
  2. VIOXX [Suspect]
     Route: 048
     Dates: start: 20030601, end: 20040101
  3. VIOXX [Suspect]
     Indication: PAIN
     Route: 048
     Dates: start: 20030901, end: 20040901
  4. VIOXX [Suspect]
     Route: 048
     Dates: start: 20030601, end: 20040101
  5. IBUPROFEN [Concomitant]
     Indication: PAIN MANAGEMENT
     Route: 065
  6. NEXIUM [Concomitant]
     Indication: GASTRIC DISORDER
     Route: 065
  7. ALBUTEROL [Concomitant]
     Indication: DYSPNOEA
     Route: 065

REACTIONS (7)
  - ANXIETY [None]
  - GASTRIC DISORDER [None]
  - GASTROOESOPHAGEAL REFLUX DISEASE [None]
  - HEADACHE [None]
  - MUSCULOSKELETAL PAIN [None]
  - MYOCARDIAL INFARCTION [None]
  - OEDEMA PERIPHERAL [None]
